FAERS Safety Report 14831589 (Version 8)
Quarter: 2018Q3

REPORT INFORMATION
  Report Type: Spontaneous
  Country: US (occurrence: US)
  Receive Date: 20180501
  Receipt Date: 20180910
  Transmission Date: 20181010
  Serious: No
  Sender: FDA-Public Use
  Company Number: US-PFIZER INC-2017482070

PATIENT
  Age: 70 Year
  Sex: Female
  Weight: 51 kg

DRUGS (6)
  1. XANAX [Concomitant]
     Active Substance: ALPRAZOLAM
     Dosage: UNK
  2. ONDANSETRON [Concomitant]
     Active Substance: ONDANSETRON
     Dosage: UNK
  3. FASLODEX [Concomitant]
     Active Substance: FULVESTRANT
     Indication: BREAST CANCER FEMALE
     Dosage: 500 MG, MONTHLY
     Dates: start: 20170105
  4. IBRANCE [Suspect]
     Active Substance: PALBOCICLIB
     Indication: BREAST CANCER METASTATIC
     Dosage: 100 MG, CYCLIC (ONCE A DAY 3 WEEK ON, 1 WEEK OFF/ 21 DAYS ON AND THEN 7 DAYS OFF)
     Route: 048
     Dates: start: 20180105, end: 2018
  5. OXYCODONE [Concomitant]
     Active Substance: OXYCODONE
     Dosage: UNK
  6. IBRANCE [Suspect]
     Active Substance: PALBOCICLIB
     Dosage: 100 MG, CYCLIC (ONCE A DAY 3 WEEK ON, 1 WEEK OFF/ 21 DAYS ON AND THEN 7 DAYS OFF)
     Route: 048
     Dates: start: 2018

REACTIONS (8)
  - Vertigo [Not Recovered/Not Resolved]
  - Hypoacusis [Unknown]
  - Malaise [Unknown]
  - Confusional state [Unknown]
  - Blood sodium decreased [Unknown]
  - Neoplasm progression [Unknown]
  - Contusion [Unknown]
  - Hypotension [Unknown]

NARRATIVE: CASE EVENT DATE: 2018
